FAERS Safety Report 5643136-X (Version None)
Quarter: 2008Q1

REPORT INFORMATION
  Report Type: 
  Country: None (occurrence: None)
  Receive Date: 20080226
  Receipt Date: 20080213
  Transmission Date: 20080703
  Serious: Yes (Hospitalization, Other)
  Sender: FDA-Public Use
  Company Number: US022621

PATIENT
  Age: 53 Year
  Sex: Male

DRUGS (8)
  1. TRISENOX [Suspect]
     Indication: ACUTE PROMYELOCYTIC LEUKAEMIA
     Dosage: 10.425 MG QD INTRAVENOUS DRIP
     Route: 041
     Dates: start: 20071106, end: 20071111
  2. TRISENOX [Suspect]
     Indication: ACUTE PROMYELOCYTIC LEUKAEMIA
     Dosage: 10.425 MG QD INTRAVENOUS DRIP
     Route: 041
     Dates: start: 20071115, end: 20071127
  3. TRISENOX [Suspect]
     Indication: ACUTE PROMYELOCYTIC LEUKAEMIA
     Dosage: 10.425 MG QD INTRAVENOUS DRIP
     Route: 041
     Dates: start: 20071201, end: 20071212
  4. VALPROATE SODIUM [Suspect]
     Indication: CONVULSION PROPHYLAXIS
     Dosage: 400 MG QD ORAL
     Route: 048
     Dates: start: 20071107, end: 20071112
  5. CYTARABINE [Concomitant]
  6. METHOTREXATE [Concomitant]
  7. PREDNISOLONE ACETATE [Concomitant]
  8. NAFAMOSTATE [Concomitant]

REACTIONS (11)
  - ALANINE AMINOTRANSFERASE INCREASED [None]
  - CATHETER SITE INFECTION [None]
  - CENTRAL NERVOUS SYSTEM LEUKAEMIA [None]
  - ELECTROCARDIOGRAM QT PROLONGED [None]
  - HEPATIC FUNCTION ABNORMAL [None]
  - HERPES ZOSTER [None]
  - MENINGITIS [None]
  - PANCYTOPENIA [None]
  - PSEUDOMONAS INFECTION [None]
  - SEPSIS [None]
  - STAPHYLOCOCCAL INFECTION [None]
